FAERS Safety Report 21959026 (Version 1)
Quarter: 2023Q1

REPORT INFORMATION
  Report Type: Report from Study
  Country: CA (occurrence: CA)
  Receive Date: 20230206
  Receipt Date: 20230206
  Transmission Date: 20230418
  Serious: Yes (Other)
  Sender: FDA-Public Use
  Company Number: None

PATIENT
  Age: 28 Year
  Sex: Female

DRUGS (4)
  1. TACROLIMUS [Suspect]
     Active Substance: TACROLIMUS
     Indication: Aplastic anaemia
     Dosage: 2 EVERY 1 DAYS
     Route: 065
  2. CYCLOSPORINE [Suspect]
     Active Substance: CYCLOSPORINE
     Indication: Aplastic anaemia
     Dosage: 2 EVERY 1 DAYS
     Route: 065
  3. ELTROMBOPAG [Suspect]
     Active Substance: ELTROMBOPAG
     Indication: Aplastic anaemia
     Dosage: 1 EVERY 1 DAYS
     Route: 048
  4. ELTROMBOPAG [Concomitant]
     Active Substance: ELTROMBOPAG
     Indication: Product used for unknown indication
     Dosage: 1 EVERY 1 DAYS
     Route: 048

REACTIONS (9)
  - Aplastic anaemia [Unknown]
  - Hepatotoxicity [Unknown]
  - Ovarian cyst [Unknown]
  - Platelet count decreased [Unknown]
  - Pyrexia [Unknown]
  - Sinusitis [Unknown]
  - Tachycardia [Unknown]
  - Off label use [Unknown]
  - Condition aggravated [Unknown]
